FAERS Safety Report 23966772 (Version 6)
Quarter: 2025Q1

REPORT INFORMATION
  Report Type: Spontaneous
  Country: US (occurrence: US)
  Receive Date: 20240612
  Receipt Date: 20250103
  Transmission Date: 20250408
  Serious: Yes (Hospitalization, Other)
  Sender: PFIZER
  Company Number: US-PFIZER INC-PV202400075548

PATIENT
  Age: 74 Year
  Sex: Female

DRUGS (12)
  1. XELJANZ [Suspect]
     Active Substance: TOFACITINIB CITRATE
     Route: 048
     Dates: start: 202406, end: 202408
  2. XELJANZ [Suspect]
     Active Substance: TOFACITINIB CITRATE
     Dosage: 5 MG, DAILY
     Route: 048
     Dates: start: 202409
  3. ALBUTEROL [Concomitant]
     Active Substance: ALBUTEROL
  4. ARAVA [Concomitant]
     Active Substance: LEFLUNOMIDE
  5. CARAFATE [Concomitant]
     Active Substance: SUCRALFATE
  6. CRESTOR [Concomitant]
     Active Substance: ROSUVASTATIN CALCIUM
  7. OMEPRAZOLE [Concomitant]
     Active Substance: OMEPRAZOLE
  8. PROZAC [Concomitant]
     Active Substance: FLUOXETINE HYDROCHLORIDE
  9. SULFASALAZINE [Concomitant]
     Active Substance: SULFASALAZINE
  10. TRAMADOL [Concomitant]
     Active Substance: TRAMADOL
  11. VITAMIN B12 [Concomitant]
     Active Substance: CYANOCOBALAMIN
  12. VITAMIN D3 [Concomitant]
     Active Substance: CHOLECALCIFEROL

REACTIONS (12)
  - Spinal laminectomy [Unknown]
  - Spinal decompression [Unknown]
  - Intervertebral disc protrusion [Not Recovered/Not Resolved]
  - Spinal operation [Unknown]
  - Condition aggravated [Unknown]
  - Back pain [Unknown]
  - Back injury [Unknown]
  - Fall [Unknown]
  - Hand deformity [Unknown]
  - Therapeutic product effect incomplete [Unknown]
  - Arthralgia [Unknown]
  - Rheumatoid nodule [Unknown]

NARRATIVE: CASE EVENT DATE: 20240101
